FAERS Safety Report 5206389-8 (Version None)
Quarter: 2006Q4

REPORT INFORMATION
  Report Type: 
  Country: None (occurrence: None)
  Receive Date: 20061026
  Receipt Date: 20060830
  Transmission Date: 20070319
  Serious: Yes (Other)
  Sender: FDA-Public Use
  Company Number: 2006106392

PATIENT
  Sex: Male

DRUGS (4)
  1. LYRICA [Suspect]
     Indication: FIBROMYALGIA
     Dates: end: 20060101
  2. ASPIRIN [Suspect]
     Indication: CORONARY ARTERY DISEASE
  3. CYMBALTA [Concomitant]
  4. REQUIP [Concomitant]

REACTIONS (1)
  - GASTROINTESTINAL ULCER [None]
